FAERS Safety Report 19352871 (Version 2)
Quarter: 2021Q3

REPORT INFORMATION
  Report Type: Report from Study
  Country: CN (occurrence: CN)
  Receive Date: 20210601
  Receipt Date: 20210707
  Transmission Date: 20211014
  Serious: Yes (Hospitalization)
  Sender: FDA-Public Use
  Company Number: CN-DSJP-DSE-2021-116001

PATIENT
  Age: 84 Year
  Sex: Female
  Weight: 48 kg

DRUGS (4)
  1. EDOXABAN [Suspect]
     Active Substance: EDOXABAN TOSYLATE
     Dosage: 30 MG,QD
     Route: 048
     Dates: start: 20210518
  2. LOW MOLECULAR WEIGHT HEPARINS [Concomitant]
     Active Substance: UNSPECIFIED INGREDIENT
     Indication: ATRIAL FIBRILLATION
     Dosage: UNK, QD
     Dates: start: 20210301, end: 20210302
  3. EDOXABAN [Suspect]
     Active Substance: EDOXABAN TOSYLATE
     Indication: ATRIAL FIBRILLATION
     Dosage: 30 MG, QD
     Route: 048
     Dates: start: 20210305, end: 20210514
  4. WARFARIN [Concomitant]
     Active Substance: WARFARIN
     Indication: ATRIAL FIBRILLATION
     Dosage: UNK, QD
     Dates: start: 20210301, end: 20210305

REACTIONS (4)
  - Chronic kidney disease [Recovered/Resolved]
  - Renal failure [Not Recovered/Not Resolved]
  - Supraventricular extrasystoles [Not Recovered/Not Resolved]
  - Hyperkalaemia [Recovered/Resolved]

NARRATIVE: CASE EVENT DATE: 20210305
